FAERS Safety Report 8101741-5 (Version None)
Quarter: 2012Q1

REPORT INFORMATION
  Report Type: 
  Country: None (occurrence: None)
  Receive Date: 20120131
  Receipt Date: 20120123
  Transmission Date: 20120608
  Serious: Yes (Other)
  Sender: FDA-Public Use
  Company Number: PHHY2012JP006790

PATIENT
  Age: 78 Year
  Sex: Female

DRUGS (3)
  1. FEMARA [Suspect]
     Indication: BREAST CANCER
     Dosage: 2.5 MG, DAILY
     Route: 048
  2. HORMONES NOS [Concomitant]
  3. ZOMETA [Suspect]
     Indication: METASTASES TO BONE
     Dosage: 4 MG (PER ADMINISTRATION)
     Route: 041

REACTIONS (1)
  - OSTEONECROSIS OF JAW [None]
